FAERS Safety Report 6180870-X (Version None)
Quarter: 2009Q2

REPORT INFORMATION
  Report Type: 
  Country: None (occurrence: None)
  Receive Date: 20090506
  Receipt Date: 20090422
  Transmission Date: 20091009
  Serious: No
  Sender: FDA-Public Use
  Company Number: US-BAYER-200918912NA

PATIENT
  Age: 25 Year
  Sex: Female
  Weight: 61 kg

DRUGS (9)
  1. MIRENA [Suspect]
     Indication: CONTRACEPTION
     Dosage: CONTINUOUS
     Route: 015
     Dates: start: 20090325, end: 20090422
  2. PROVIGIL [Concomitant]
  3. LEXAPRO [Concomitant]
  4. LAMICTAL [Concomitant]
  5. ASMANEX TWISTHALER [Concomitant]
     Route: 055
  6. CLARITIN [Concomitant]
     Dosage: NON-DROWSY
  7. AMBIEN [Concomitant]
  8. KLONOPIN [Concomitant]
  9. ALBUTEROL [Concomitant]
     Route: 055

REACTIONS (4)
  - ABDOMINAL PAIN LOWER [None]
  - METRORRHAGIA [None]
  - OVARIAN CYST [None]
  - PROCEDURAL COMPLICATION [None]
